FAERS Safety Report 5537431-2 (Version None)
Quarter: 2007Q4

REPORT INFORMATION
  Report Type: 
  Country: None (occurrence: None)
  Receive Date: 20071207
  Receipt Date: 20071201
  Transmission Date: 20080405
  Serious: Yes (Hospitalization)
  Sender: FDA-Public Use
  Company Number: GB-ROCHE-534552

PATIENT
  Age: 44 Year
  Sex: Male
  Weight: 166 kg

DRUGS (5)
  1. ORLISTAT [Suspect]
     Indication: OBESITY
     Route: 048
     Dates: start: 20070703
  2. WARFARIN SODIUM [Concomitant]
     Dosage: INDICATION: THINNING BLOOD
     Route: 048
     Dates: start: 19920101
  3. FELODIPINE [Concomitant]
     Dosage: DRUG: SELODOPINE
     Route: 048
     Dates: start: 20050101, end: 20071101
  4. CANDESARTAN CILEXETIL [Concomitant]
     Route: 048
     Dates: start: 20050101
  5. BENDROFLUMETHIAZIDE [Concomitant]
     Dosage: INDICATION: WATER TBL
     Route: 048

REACTIONS (1)
  - CELLULITIS [None]
